FAERS Safety Report 16818619 (Version 3)
Quarter: 2019Q4

REPORT INFORMATION
  Report Type: Spontaneous
  Country: US (occurrence: US)
  Receive Date: 20190917
  Receipt Date: 20191108
  Transmission Date: 20200122
  Serious: No
  Sender: FDA-Public Use
  Company Number: US-ASTRAZENECA-2019SF27517

PATIENT
  Sex: Female

DRUGS (1)
  1. SEROQUEL [Suspect]
     Active Substance: QUETIAPINE FUMARATE
     Route: 048

REACTIONS (9)
  - Depression [Unknown]
  - Anxiety [Unknown]
  - Tremor [Unknown]
  - Muscle twitching [Unknown]
  - Dysphonia [Unknown]
  - Mouth ulceration [Unknown]
  - Feeling abnormal [Unknown]
  - Tongue disorder [Unknown]
  - Tardive dyskinesia [Unknown]
